FAERS Safety Report 11914297 (Version 2)
Quarter: 2016Q1

REPORT INFORMATION
  Report Type: Spontaneous
  Country: US (occurrence: US)
  Receive Date: 20160113
  Receipt Date: 20160120
  Transmission Date: 20160526
  Serious: No
  Sender: FDA-Public Use
  Company Number: US-BAYER-2016-007014

PATIENT
  Age: 66 Year
  Sex: Female

DRUGS (1)
  1. CLIMARA [Suspect]
     Active Substance: ESTRADIOL
     Dosage: 0.025 MG, UNK
     Route: 062

REACTIONS (5)
  - Application site irritation [Recovered/Resolved]
  - Application site pain [Recovered/Resolved]
  - Product quality issue [None]
  - Product adhesion issue [None]
  - Scratch [None]

NARRATIVE: CASE EVENT DATE: 20151215
